FAERS Safety Report 11539318 (Version 1)
Quarter: 2015Q3

REPORT INFORMATION
  Report Type: Spontaneous
  Country: US (occurrence: None)
  Receive Date: 20150922
  Receipt Date: 20150922
  Transmission Date: 20151125
  Serious: Yes (Other)
  Sender: FDA-Public Use
  Company Number: None

PATIENT
  Age: 73 Year
  Sex: Female
  Weight: 66.2 kg

DRUGS (7)
  1. LOSARTAN. [Concomitant]
     Active Substance: LOSARTAN
  2. ROSUVASTATIN (AKA CRESTOR) [Concomitant]
  3. DILTIAZEM (AKA CARDIZEM CD) [Concomitant]
  4. ELIQUIS [Suspect]
     Active Substance: APIXABAN
     Indication: ATRIAL FIBRILLATION
     Route: 048
     Dates: start: 20150709, end: 20150811
  5. CILOSTAZOL (PLETAL) [Concomitant]
  6. OMEPRAZOLE MAGNESIUM. [Concomitant]
     Active Substance: OMEPRAZOLE MAGNESIUM
  7. FUROSEMIDE. [Concomitant]
     Active Substance: FUROSEMIDE

REACTIONS (6)
  - Pleural effusion [None]
  - Liver function test abnormal [None]
  - Pyrexia [None]
  - Discomfort [None]
  - Pericardial effusion [None]
  - Fatigue [None]

NARRATIVE: CASE EVENT DATE: 20150804
